FAERS Safety Report 9344782 (Version 1)
Quarter: 2013Q2

REPORT INFORMATION
  Report Type: Spontaneous
  Country: CA (occurrence: CA)
  Receive Date: 20130612
  Receipt Date: 20130612
  Transmission Date: 20140414
  Serious: Yes (Life-Threatening, Hospitalization)
  Sender: FDA-Public Use
  Company Number: CA-JNJFOC-20130607203

PATIENT
  Age: 68 Year
  Sex: Male
  Weight: 125.4 kg

DRUGS (8)
  1. XARELTO [Suspect]
     Indication: CEREBROVASCULAR ACCIDENT PROPHYLAXIS
     Route: 048
     Dates: start: 20120920, end: 20130605
  2. XARELTO [Suspect]
     Indication: ATRIAL FIBRILLATION
     Route: 048
     Dates: start: 20120920, end: 20130605
  3. CIPRALEX [Concomitant]
     Route: 048
  4. SYMBICORT [Concomitant]
     Route: 065
  5. VERAPAMIL [Concomitant]
     Route: 048
  6. PREVACID [Concomitant]
     Route: 048
  7. ATACAND D [Concomitant]
     Route: 048
  8. CRESTOR [Concomitant]
     Route: 048

REACTIONS (1)
  - Pulmonary embolism [Recovered/Resolved]
